FAERS Safety Report 9144843 (Version 1)
Quarter: 2013Q1

REPORT INFORMATION
  Report Type: Spontaneous
  Country: US (occurrence: US)
  Receive Date: 20130307
  Receipt Date: 20130307
  Transmission Date: 20140127
  Serious: Yes (Other)
  Sender: FDA-Public Use
  Company Number: US-AMGEN-USASP2013015198

PATIENT
  Age: 64 Year
  Sex: Male

DRUGS (3)
  1. ENBREL [Suspect]
     Indication: ANKYLOSING SPONDYLITIS
     Dosage: UNK
     Dates: start: 2004
  2. METHOTREXATE [Concomitant]
     Dosage: UNK MG, WEEKLY
     Route: 048
  3. FOSAMAX [Concomitant]
     Dosage: UNK

REACTIONS (13)
  - Attention deficit/hyperactivity disorder [Not Recovered/Not Resolved]
  - Uveitis [Recovered/Resolved]
  - Hair growth abnormal [Not Recovered/Not Resolved]
  - Tooth erosion [Recovered/Resolved]
  - Tooth extraction [Recovered/Resolved]
  - Impaired healing [Recovered/Resolved]
  - Cough [Recovered/Resolved]
  - Arthralgia [Not Recovered/Not Resolved]
  - Synovial cyst [Unknown]
  - Rhinorrhoea [Recovered/Resolved]
  - Bronchitis [Unknown]
  - Tooth abscess [Unknown]
  - Nasopharyngitis [Recovered/Resolved]
